FAERS Safety Report 12034045 (Version 1)
Quarter: 2016Q1

REPORT INFORMATION
  Report Type: Report from Study
  Country: US (occurrence: US)
  Receive Date: 20160207
  Receipt Date: 20160207
  Transmission Date: 20160526
  Serious: No
  Sender: FDA-Public Use
  Company Number: US-ABBVIE-15K-163-1518948-00

PATIENT
  Age: 58 Year
  Sex: Female

DRUGS (1)
  1. HUMIRA [Suspect]
     Active Substance: ADALIMUMAB
     Indication: CROHN^S DISEASE
     Dosage: DAY ONE
     Route: 058
     Dates: start: 20151124, end: 20151124

REACTIONS (11)
  - Cough [Unknown]
  - Haematochezia [Unknown]
  - Nausea [Unknown]
  - Abdominal pain [Unknown]
  - Dysphonia [Unknown]
  - Oropharyngeal pain [Unknown]
  - Diarrhoea [Unknown]
  - Chills [Unknown]
  - Fatigue [Unknown]
  - Insomnia [Unknown]
  - Depressed mood [Unknown]

NARRATIVE: CASE EVENT DATE: 20151202
